FAERS Safety Report 5110882-6 (Version None)
Quarter: 2006Q3

REPORT INFORMATION
  Report Type: 
  Country: None (occurrence: None)
  Receive Date: 20060919
  Receipt Date: 20060906
  Transmission Date: 20061208
  Serious: Yes (Other)
  Sender: FDA-Public Use
  Company Number: T200600990

PATIENT
  Age: 17 Year
  Sex: Male
  Weight: 52 kg

DRUGS (5)
  1. MEPERIDINE HCL [Suspect]
     Dosage: 50 MG, INTRAVENOUS
     Route: 042
  2. FENTANYL [Suspect]
     Indication: SEDATION
     Dosage: SEE IMAGE
  3. METOCLOPRAMIDE [Suspect]
     Indication: PROPHYLAXIS OF NAUSEA AND VOMITING
     Dosage: 10 MG, SINGLE,
  4. DIAZEPAM [Concomitant]
  5. BUPIVACAIN ACS DOBFAR INFO (BUPIVACAINE HYDROCHLORIDE) [Concomitant]

REACTIONS (5)
  - CHILLS [None]
  - MUSCLE RIGIDITY [None]
  - NUCHAL RIGIDITY [None]
  - PYREXIA [None]
  - WOUND EVISCERATION [None]
